FAERS Safety Report 10337814 (Version 4)
Quarter: 2015Q1

REPORT INFORMATION
  Report Type: Spontaneous
  Country: US (occurrence: US)
  Receive Date: 20140724
  Receipt Date: 20150123
  Transmission Date: 20150720
  Serious: Yes (Hospitalization, Other)
  Sender: FDA-Public Use
  Company Number: US-AMGEN-USASP2014042458

PATIENT
  Age: 82 Year
  Sex: Female
  Weight: 48.98 kg

DRUGS (2)
  1. ENBREL [Suspect]
     Active Substance: ETANERCEPT
     Indication: PSORIATIC ARTHROPATHY
     Dosage: 50 MG, 2 TIMES/WK
     Route: 065
     Dates: start: 20131015
  2. ENBREL [Suspect]
     Active Substance: ETANERCEPT
     Indication: PSORIASIS

REACTIONS (15)
  - Anorectal discomfort [Recovered/Resolved]
  - Psoriasis [Not Recovered/Not Resolved]
  - Proctalgia [Recovered/Resolved]
  - Arthralgia [Not Recovered/Not Resolved]
  - Diplopia [Unknown]
  - Orthosis user [Recovered/Resolved]
  - Pain in extremity [Not Recovered/Not Resolved]
  - Small intestinal obstruction [Recovered/Resolved]
  - Activities of daily living impaired [Not Recovered/Not Resolved]
  - Abdominal pain upper [Recovered/Resolved]
  - Ocular vascular disorder [Unknown]
  - Diarrhoea [Recovered/Resolved]
  - Skin plaque [Not Recovered/Not Resolved]
  - Visual impairment [Not Recovered/Not Resolved]
  - Frequent bowel movements [Recovered/Resolved]

NARRATIVE: CASE EVENT DATE: 2014
